FAERS Safety Report 8289943 (Version 2)
Quarter: 2012Q4

REPORT INFORMATION
  Report Type: Spontaneous
  Country: US (occurrence: None)
  Receive Date: 20111122
  Receipt Date: 20120426
  Transmission Date: 20130627
  Serious: Yes (Other)
  Sender: FDA-Public Use
  Company Number: PHHY2011US63752

PATIENT
  Age: 40 Year
  Sex: Female
  Weight: 85.3 kg

DRUGS (6)
  1. GILENYA [Suspect]
     Indication: MULTIPLE SCLEROSIS
     Dosage: 0.5 MG,. DAILY, ORAL
     Route: 048
     Dates: start: 20110329
  2. PROZAC (FLUOXETINE HYDROCHLORIDE) [Concomitant]
  3. BACLOFEN [Concomitant]
  4. LISINOPRIL [Concomitant]
  5. VITAMIN D (ERGOCALCIFEROL) [Concomitant]
  6. ORAL CONTRACEPTIVE NOS [Concomitant]

REACTIONS (5)
  - Enzyme abnormality [None]
  - Lymphopenia [None]
  - Liver function test abnormal [None]
  - Aspartate aminotransferase increased [None]
  - Alanine aminotransferase increased [None]
